FAERS Safety Report 13010536 (Version 2)
Quarter: 2017Q1

REPORT INFORMATION
  Report Type: Spontaneous
  Country: FR (occurrence: FR)
  Receive Date: 20161208
  Receipt Date: 20170113
  Transmission Date: 20170428
  Serious: Yes (Other)
  Sender: FDA-Public Use
  Company Number: FR-GLAXOSMITHKLINE-FR2016181258

PATIENT
  Age: 4 Year
  Sex: Male

DRUGS (8)
  1. TACROLIMUS. [Concomitant]
     Active Substance: TACROLIMUS
     Indication: IMMUNOSUPPRESSION
  2. ACICLOVIR [Suspect]
     Active Substance: ACYCLOVIR
     Indication: PRODUCT USED FOR UNKNOWN INDICATION
  3. METHYLPREDNISOLONE. [Concomitant]
     Active Substance: METHYLPREDNISOLONE
     Indication: IMMUNOSUPPRESSION
  4. GANCICLOVIR. [Concomitant]
     Active Substance: GANCICLOVIR
     Indication: HUMAN HERPESVIRUS 6 INFECTION
  5. MYCOPHENOLATE MOFETIL. [Concomitant]
     Active Substance: MYCOPHENOLATE MOFETIL
     Indication: PRODUCT USED FOR UNKNOWN INDICATION
  6. SULFAMETHOXAZOLE + TRIMETHOPRIM [Concomitant]
     Active Substance: SULFAMETHOXAZOLE\TRIMETHOPRIM
     Indication: PRODUCT USED FOR UNKNOWN INDICATION
  7. ABACIN [Concomitant]
     Active Substance: SULFAMETHOXAZOLE\TRIMETHOPRIM
     Indication: PRODUCT USED FOR UNKNOWN INDICATION
  8. BASILIXIMAB [Concomitant]
     Active Substance: BASILIXIMAB
     Indication: IMMUNOSUPPRESSION

REACTIONS (10)
  - Alopecia [Recovered/Resolved]
  - Mouth ulceration [Recovered/Resolved]
  - Madarosis [Recovered/Resolved]
  - Eosinophilia [Recovered/Resolved]
  - Rash papulosquamous [Recovered/Resolved]
  - Dermatitis exfoliative [Recovered/Resolved]
  - Skin ulcer [Recovered/Resolved]
  - Hepatitis [Recovered/Resolved]
  - Hyperkeratosis [Recovered/Resolved]
  - Eye ulcer [Recovered/Resolved]
